FAERS Safety Report 20495717 (Version 6)
Quarter: 2022Q3

REPORT INFORMATION
  Report Type: Report from Study
  Country: BR (occurrence: BR)
  Receive Date: 20220221
  Receipt Date: 20220729
  Transmission Date: 20221027
  Serious: Yes (Hospitalization)
  Sender: FDA-Public Use
  Company Number: BR-JNJFOC-20220235249

PATIENT
  Age: 13 Year
  Sex: Male
  Weight: 42 kg

DRUGS (12)
  1. INFLIXIMAB [Suspect]
     Active Substance: INFLIXIMAB
     Indication: Colitis
     Route: 041
     Dates: start: 20191205
  2. INFLIXIMAB [Suspect]
     Active Substance: INFLIXIMAB
     Indication: Colitis ulcerative
  3. INFLIXIMAB [Suspect]
     Active Substance: INFLIXIMAB
     Indication: Colitis ulcerative
     Dosage: (10 MG/ML VIAL 10 ML).RECONSTITUTE 440 MG IN 10 ML OF WATER FOR INJECTIONS. DILUTE TO 250 ML OF 0.9
     Route: 041
     Dates: start: 20211203
  4. INFLIXIMAB [Suspect]
     Active Substance: INFLIXIMAB
     Dosage: INFLIXIMAB (10 MG/ML - 10 ML BOTTLE) RECONSTITUTE 400 MG (4 AMPOULES) IN 10 ML OF WATER FOR INJECTIO
     Route: 041
     Dates: start: 20211203
  5. REMICADE [Suspect]
     Active Substance: INFLIXIMAB
     Indication: Colitis
     Dosage: DOSE: 9.1 MG EVERY 4 WEEKS - INFLIXIMAB LEVEL 10 ON INDUCTION WITH RECENT RELAPSE ON 15-MAY-2022. DI
     Route: 041
  6. REMICADE [Suspect]
     Active Substance: INFLIXIMAB
     Route: 041
  7. MESALAMINE [Concomitant]
     Active Substance: MESALAMINE
  8. DEXAMETHASONE SODIUM PHOSPHATE [Concomitant]
     Active Substance: DEXAMETHASONE SODIUM PHOSPHATE
  9. AZATHIOPRINE [Concomitant]
     Active Substance: AZATHIOPRINE
  10. IRON [Concomitant]
     Active Substance: IRON
  11. CALCIUM SACCHARATE [Concomitant]
     Active Substance: CALCIUM SACCHARATE
  12. ERGOCALCIFEROL [Concomitant]
     Active Substance: ERGOCALCIFEROL

REACTIONS (4)
  - Colitis ulcerative [Recovering/Resolving]
  - Drug level decreased [Recovering/Resolving]
  - Off label use [Unknown]
  - Product prescribing error [Unknown]

NARRATIVE: CASE EVENT DATE: 20210901
